FAERS Safety Report 4736525-9 (Version None)
Quarter: 2005Q3

REPORT INFORMATION
  Report Type: 
  Country: None (occurrence: None)
  Receive Date: 20050804
  Receipt Date: 20050804
  Transmission Date: 20060218
  Serious: Yes (Other)
  Sender: FDA-Public Use
  Company Number: None

PATIENT
  Age: 72 Year
  Sex: Male
  Weight: 79.4 kg

DRUGS (3)
  1. ETODOLAC [Suspect]
  2. OMEPRAZOLE [Concomitant]
  3. ETODOLAC [Concomitant]

REACTIONS (3)
  - AGITATION [None]
  - NERVOUSNESS [None]
  - PALPITATIONS [None]
